FAERS Safety Report 9156141 (Version 1)
Quarter: 2013Q1

REPORT INFORMATION
  Report Type: Report from Study
  Country: US (occurrence: US)
  Receive Date: 20130311
  Receipt Date: 20130311
  Transmission Date: 20140127
  Serious: Yes (Hospitalization)
  Sender: FDA-Public Use
  Company Number: US-US-EMD SERONO, INC.-7197860

PATIENT
  Sex: Female

DRUGS (4)
  1. REBIF [Suspect]
     Indication: MULTIPLE SCLEROSIS
     Route: 058
     Dates: start: 20120223
  2. LANTUS [Concomitant]
     Indication: TYPE 2 DIABETES MELLITUS
  3. IMPLANTON (ETONOGESTREL IMPLANT) [Concomitant]
     Indication: CONTRACEPTION
  4. NOVOLOG PEN [Concomitant]
     Indication: TYPE 2 DIABETES MELLITUS

REACTIONS (2)
  - Asthma [Unknown]
  - Fibrin D dimer increased [Recovering/Resolving]
